FAERS Safety Report 17931284 (Version 1)
Quarter: 2020Q2

REPORT INFORMATION
  Report Type: Spontaneous
  Country: US (occurrence: US)
  Receive Date: 20200623
  Receipt Date: 20200623
  Transmission Date: 20200714
  Serious: Yes (Other)
  Sender: FDA-Public Use
  Company Number: US-ALLERGAN-2024074US

PATIENT
  Sex: Female

DRUGS (4)
  1. TROSPIUM [Suspect]
     Active Substance: TROSPIUM
     Indication: PRODUCT USED FOR UNKNOWN INDICATION
     Dosage: UNK
     Route: 065
  2. MYRBETRIQ [Concomitant]
     Active Substance: MIRABEGRON
  3. OXYBUTYNIN UNK [Suspect]
     Active Substance: OXYBUTYNIN
     Indication: PRODUCT USED FOR UNKNOWN INDICATION
     Dosage: UNK
     Route: 065
  4. VESICARE [Suspect]
     Active Substance: SOLIFENACIN SUCCINATE
     Indication: HYPERTONIC BLADDER
     Route: 048

REACTIONS (9)
  - Dry mouth [Unknown]
  - Gingivitis [Unknown]
  - Oral pain [Unknown]
  - Dyspnoea [Unknown]
  - Oral fungal infection [Unknown]
  - Tooth infection [Unknown]
  - Mouth swelling [Unknown]
  - Swollen tongue [Unknown]
  - Mouth ulceration [Unknown]
